FAERS Safety Report 8509641-3 (Version None)
Quarter: 2012Q3

REPORT INFORMATION
  Report Type: 
  Country: None (occurrence: None)
  Receive Date: 20120713
  Receipt Date: 20120709
  Transmission Date: 20120928
  Serious: Yes (Other)
  Sender: FDA-Public Use
  Company Number: PHHY2012US058730

PATIENT
  Sex: Female

DRUGS (2)
  1. BUFFERIN [Suspect]
     Indication: HEADACHE
     Dosage: 1 DF, PRN
     Route: 048
  2. BUFFERIN [Suspect]
     Indication: PYREXIA

REACTIONS (1)
  - ROAD TRAFFIC ACCIDENT [None]
